FAERS Safety Report 5931418-3 (Version None)
Quarter: 2008Q4

REPORT INFORMATION
  Report Type: 
  Country: None (occurrence: None)
  Receive Date: 20081024
  Receipt Date: 20081024
  Transmission Date: 20090506
  Serious: Yes (Hospitalization)
  Sender: FDA-Public Use
  Company Number: None

PATIENT
  Sex: Male
  Weight: 60.3738 kg

DRUGS (2)
  1. DASATINIB [Suspect]
     Indication: SOFT TISSUE DISORDER
     Dosage: 70 MG BID PO
     Route: 048
     Dates: start: 20081011, end: 20081023
  2. DASATINIB [Suspect]
     Indication: UNDIFFERENTIATED SARCOMA
     Dosage: 70 MG BID PO
     Route: 048
     Dates: start: 20081011, end: 20081023

REACTIONS (2)
  - ENDODONTIC PROCEDURE [None]
  - INFECTION [None]
